FAERS Safety Report 26035690 (Version 1)
Quarter: 2025Q4

REPORT INFORMATION
  Report Type: Spontaneous
  Country: EU (occurrence: EU)
  Receive Date: 20251112
  Receipt Date: 20251112
  Transmission Date: 20260118
  Serious: Yes (Other)
  Sender: ACCORD
  Company Number: None

PATIENT
  Age: 55 Year
  Sex: Male
  Weight: 62 kg

DRUGS (8)
  1. DAPTOMYCIN [Suspect]
     Active Substance: DAPTOMYCIN
     Indication: Sinusitis
     Dates: start: 20210413, end: 20210416
  2. POSACONAZOLE [Suspect]
     Active Substance: POSACONAZOLE
     Indication: Mucormycosis
     Dosage: LOADING DOSE 100MG *2 THEN 100MG/DAY
     Dates: start: 20210515, end: 20210519
  3. AMBISOME [Suspect]
     Active Substance: AMPHOTERICIN B
     Indication: Mucormycosis
     Dosage: STRENGTH: 50 MG, POWDER FOR SUSPENSION OF LIPOSOMES FOR INFUSION
     Dates: start: 20210427, end: 20210514
  4. CEFAZOLIN [Suspect]
     Active Substance: CEFAZOLIN
     Indication: Sinusitis
     Dosage: ADJUSTED ACCORDING TO RENAL FUNCTION (1G/12H) UP TO 2G/8H
     Dates: start: 20210513
  5. LANSOPRAZOLE [Suspect]
     Active Substance: LANSOPRAZOLE
     Indication: Product used for unknown indication
     Dates: start: 20210419
  6. AMITRIPTYLINE HYDROCHLORIDE [Suspect]
     Active Substance: AMITRIPTYLINE HYDROCHLORIDE
     Indication: Product used for unknown indication
     Dosage: STRENGTH: 40 MG/ML, ORAL SOLUTION, 15 TO 30 DROPS PER DAY
     Dates: start: 20210429, end: 20210506
  7. LOVENOX [Suspect]
     Active Substance: ENOXAPARIN SODIUM
     Indication: Thrombosis prophylaxis
     Dosage: STRENGTH: 4,000 IU ANTI-XA/0.4 ML, SOLUTION FOR INJECTION IN CARTRIDGE
     Dates: start: 20210428
  8. PIPERACILLIN AND TAZOBACTAM [Suspect]
     Active Substance: PIPERACILLIN SODIUM\TAZOBACTAM SODIUM
     Indication: Sinusitis
     Dates: start: 20210427, end: 20210504

REACTIONS (1)
  - Cholestasis [Recovering/Resolving]

NARRATIVE: CASE EVENT DATE: 20210519
